FAERS Safety Report 5509455-2 (Version None)
Quarter: 2007Q4

REPORT INFORMATION
  Report Type: 
  Country: None (occurrence: None)
  Receive Date: 20071106
  Receipt Date: 20071024
  Transmission Date: 20080405
  Serious: Yes (Death)
  Sender: FDA-Public Use
  Company Number: 163356USA

PATIENT
  Sex: Male

DRUGS (1)
  1. ACICLOVIR 200 MG CAPSULES (ACICLOVIR) [Suspect]
     Dates: start: 20070501

REACTIONS (3)
  - HALLUCINATION [None]
  - HEPATIC FAILURE [None]
  - RESTLESS LEGS SYNDROME [None]
